FAERS Safety Report 8488854-3 (Version None)
Quarter: 2012Q3

REPORT INFORMATION
  Report Type: 
  Country: None (occurrence: None)
  Receive Date: 20120705
  Receipt Date: 20120628
  Transmission Date: 20120928
  Serious: Yes (Other)
  Sender: FDA-Public Use
  Company Number: US-ROCHE-784254

PATIENT
  Sex: Male
  Weight: 54.48 kg

DRUGS (6)
  1. ACCUTANE [Suspect]
     Indication: ACNE
     Route: 065
  2. KENALOG [Concomitant]
  3. PEPCID [Concomitant]
  4. DORYX (UNITED STATES) [Concomitant]
  5. ACCUTANE [Suspect]
     Route: 065
     Dates: start: 20011001, end: 20020301
  6. ACCUTANE [Suspect]
     Dates: start: 20020601, end: 20020901

REACTIONS (6)
  - COLITIS ULCERATIVE [None]
  - INFLAMMATORY BOWEL DISEASE [None]
  - EMOTIONAL DISTRESS [None]
  - BLOOD CHOLESTEROL INCREASED [None]
  - CHAPPED LIPS [None]
  - DEPRESSION [None]
